FAERS Safety Report 4525493-0 (Version None)
Quarter: 2004Q4

REPORT INFORMATION
  Report Type: 
  Country: None (occurrence: None)
  Receive Date: 20041108
  Receipt Date: 20040528
  Transmission Date: 20050328
  Serious: Yes (Hospitalization)
  Sender: FDA-Public Use
  Company Number: US-JNJFOC-20040600077

PATIENT
  Age: 25 Year
  Sex: Male

DRUGS (1)
  1. EXTRA STRENGTH TYLENOL [Suspect]
     Indication: DRUG USE FOR UNKNOWN INDICATION
     Dosage: 12000 MG, 1 IN 1 TOTAL, ORAL
     Route: 048
     Dates: start: 20040520, end: 20040520

REACTIONS (1)
  - INTENTIONAL OVERDOSE [None]
